FAERS Safety Report 16307869 (Version 1)
Quarter: 2019Q2

REPORT INFORMATION
  Report Type: Report from Study
  Country: None (occurrence: CO)
  Receive Date: 20190514
  Receipt Date: 20190514
  Transmission Date: 20190711
  Serious: Yes (Hospitalization)
  Sender: FDA-Public Use
  Company Number: CO-ABBVIE-19K-036-2781399-00

PATIENT
  Age: 20 Year
  Sex: Male

DRUGS (1)
  1. HUMIRA [Suspect]
     Active Substance: ADALIMUMAB
     Indication: HIDRADENITIS
     Route: 058
     Dates: start: 20190118

REACTIONS (3)
  - Haemoglobin decreased [Recovering/Resolving]
  - Orchitis noninfective [Recovering/Resolving]
  - Nodule [Recovering/Resolving]

NARRATIVE: CASE EVENT DATE: 20190424
